FAERS Safety Report 24053142 (Version 1)
Quarter: 2024Q3

REPORT INFORMATION
  Report Type: Spontaneous
  Country: US (occurrence: US)
  Receive Date: 20240705
  Receipt Date: 20240705
  Transmission Date: 20241017
  Serious: Yes (Hospitalization, Other)
  Sender: APOTEX
  Company Number: US-APOTEX-2024AP007905

PATIENT
  Age: 43 Year
  Sex: Male

DRUGS (2)
  1. GLYCOPYRROLATE [Suspect]
     Active Substance: GLYCOPYRROLATE
     Indication: Bradycardia
     Dosage: UNK
     Route: 065
  2. SUGAMMADEX [Suspect]
     Active Substance: SUGAMMADEX
     Indication: Product used for unknown indication
     Dosage: 200 MILLIGRAM
     Route: 065

REACTIONS (1)
  - Cardiomyopathy [Recovering/Resolving]
